FAERS Safety Report 7497585-8 (Version None)
Quarter: 2011Q2

REPORT INFORMATION
  Report Type: 
  Country: None (occurrence: None)
  Receive Date: 20110523
  Receipt Date: 20110510
  Transmission Date: 20111010
  Serious: Yes (Other)
  Sender: FDA-Public Use
  Company Number: GB-MYLANLABS-2011S1009673

PATIENT
  Age: 45 Year
  Sex: Female
  Weight: 98 kg

DRUGS (6)
  1. AMOXICILLIN [Concomitant]
     Indication: ANAPHYLACTIC REACTION
  2. FLUOROURACIL [Suspect]
     Indication: BREAST CANCER
     Dates: start: 20100825, end: 20101208
  3. HERCEPTIN [Suspect]
     Indication: BREAST CANCER FEMALE
     Dates: start: 20110206, end: 20110331
  4. AMPICILLIN SODIUM/SULBACTAM SODIUM [Concomitant]
     Indication: ANAPHYLACTIC REACTION
  5. CYCLOPHOSPHAMIDE [Suspect]
     Indication: BREAST CANCER
     Dates: start: 20100825, end: 20101208
  6. EPIRUBICIN [Suspect]
     Indication: BREAST CANCER
     Dates: start: 20100825, end: 20101208

REACTIONS (2)
  - LEFT VENTRICULAR DYSFUNCTION [None]
  - CARDIAC FAILURE [None]
